FAERS Safety Report 8789928 (Version 2)
Quarter: 2012Q4

REPORT INFORMATION
  Report Type: 
  Country: US (occurrence: US)
  Receive Date: 20120917
  Receipt Date: 20121217
  Transmission Date: 20130627
  Serious: Yes (Death)
  Sender: FDA-Public Use
  Company Number: US-ELI_LILLY_AND_COMPANY-US201209002776

PATIENT
  Sex: Male
  Weight: 86.5 kg

DRUGS (1)
  1. GEMZAR [Suspect]
     Indication: METASTATIC NEOPLASM
     Dosage: UNK, unknown
     Route: 042
     Dates: start: 20120621, end: 20120801

REACTIONS (2)
  - Malignant neoplasm progression [Fatal]
  - Performance status decreased [Not Recovered/Not Resolved]
